FAERS Safety Report 9691018 (Version 1)
Quarter: 2013Q4

REPORT INFORMATION
  Report Type: Spontaneous
  Country: JP (occurrence: JP)
  Receive Date: 20131115
  Receipt Date: 20131115
  Transmission Date: 20140711
  Serious: Yes (Other)
  Sender: FDA-Public Use
  Company Number: JP-ROCHE-1304915

PATIENT
  Age: 70 Year
  Sex: Male

DRUGS (2)
  1. RITUXIMAB [Suspect]
     Indication: B-CELL LYMPHOMA
     Route: 042
  2. FLUDARABINE PHOSPHATE [Concomitant]
     Indication: B-CELL LYMPHOMA

REACTIONS (1)
  - Myelodysplastic syndrome [Unknown]
